FAERS Safety Report 22290745 (Version 8)
Quarter: 2024Q3

REPORT INFORMATION
  Report Type: Report from Study
  Country: US (occurrence: US)
  Receive Date: 20230505
  Receipt Date: 20240829
  Transmission Date: 20241017
  Serious: Yes (Other)
  Sender: NOVARTIS
  Company Number: US-002147023-NVSC2023US103806

PATIENT
  Sex: Female

DRUGS (3)
  1. KESIMPTA [Suspect]
     Active Substance: OFATUMUMAB
     Indication: Product used for unknown indication
     Dosage: UNK
     Route: 065
  2. MELATONIN [Concomitant]
     Active Substance: MELATONIN
     Indication: Product used for unknown indication
     Dosage: UNK
     Route: 065
  3. BACLOFEN [Concomitant]
     Active Substance: BACLOFEN
     Indication: Product used for unknown indication
     Dosage: UNK
     Route: 065

REACTIONS (21)
  - Multiple sclerosis relapse [Unknown]
  - Stress [Unknown]
  - Bursitis [Unknown]
  - Myalgia [Unknown]
  - Diarrhoea [Unknown]
  - Urinary tract infection [Unknown]
  - Decreased appetite [Unknown]
  - Asthenia [Unknown]
  - Hyperhidrosis [Unknown]
  - Grip strength decreased [Unknown]
  - Poor quality sleep [Unknown]
  - Muscle spasms [Unknown]
  - Gait inability [Unknown]
  - Ataxia [Unknown]
  - Pyrexia [Unknown]
  - Pruritus [Unknown]
  - Malaise [Unknown]
  - Pain [Unknown]
  - Therapeutic response shortened [Unknown]
  - Nasopharyngitis [Unknown]
  - Vertigo [Unknown]
